FAERS Safety Report 23134693 (Version 1)
Quarter: 2023Q4

REPORT INFORMATION
  Report Type: Spontaneous
  Country: US (occurrence: None)
  Receive Date: 20231031
  Receipt Date: 20231031
  Transmission Date: 20240110
  Serious: Yes (Hospitalization)
  Sender: FDA-Public Use
  Company Number: None

PATIENT
  Age: 61 Year
  Sex: Female
  Weight: 92.25 kg

DRUGS (12)
  1. MOUNJARO [Suspect]
     Active Substance: TIRZEPATIDE
     Indication: Type 2 diabetes mellitus
     Dosage: OTHER FREQUENCY : WEEKLY;?
     Route: 023
  2. MOUNJARO [Suspect]
     Active Substance: TIRZEPATIDE
     Indication: Hyperglycaemia
  3. JARDIANCE [Concomitant]
     Active Substance: EMPAGLIFLOZIN
  4. Metformin XR 1000mg twice daily [Concomitant]
  5. Rosuvastatin 10mg daily [Concomitant]
  6. metoprolol succinate 25mg daily [Concomitant]
  7. spironolactone 25mg daily [Concomitant]
  8. entresto 24-26 mg twice daily [Concomitant]
  9. estradiol 10mcg insert daily [Concomitant]
  10. zetia 10mg daily [Concomitant]
  11. SERTRALINE [Concomitant]
     Active Substance: SERTRALINE HYDROCHLORIDE
  12. tresiba 28 units daily [Concomitant]

REACTIONS (4)
  - Abdominal pain [None]
  - Nausea [None]
  - Constipation [None]
  - Faecaloma [None]

NARRATIVE: CASE EVENT DATE: 20231030
